FAERS Safety Report 19292790 (Version 1)
Quarter: 2021Q2

REPORT INFORMATION
  Report Type: Spontaneous
  Country: JP (occurrence: JP)
  Receive Date: 20210524
  Receipt Date: 20210524
  Transmission Date: 20210717
  Serious: Yes (Hospitalization, Other)
  Sender: FDA-Public Use
  Company Number: NVSJ2021JP007200

PATIENT
  Sex: Female

DRUGS (1)
  1. EQUMET [Suspect]
     Active Substance: METFORMIN HYDROCHLORIDE\VILDAGLIPTIN
     Indication: PRODUCT USED FOR UNKNOWN INDICATION
     Dosage: 1DF:METFORMIN HYDROCHLORIDE 500MG/ VILDAGLIPTIN 50MG
     Route: 048

REACTIONS (3)
  - Renal impairment [Unknown]
  - Skin disorder [Unknown]
  - Blood glucose increased [Unknown]
